FAERS Safety Report 5335526-X (Version None)
Quarter: 2007Q2

REPORT INFORMATION
  Report Type: 
  Country: None (occurrence: None)
  Receive Date: 20070525
  Receipt Date: 20070521
  Transmission Date: 20071010
  Serious: Yes (Other)
  Sender: FDA-Public Use
  Company Number: FR-PFIZER INC-2007040752

PATIENT
  Age: 43 Year
  Sex: Female

DRUGS (1)
  1. TAHOR [Suspect]

REACTIONS (1)
  - MUSCULAR WEAKNESS [None]
